FAERS Safety Report 14114180 (Version 3)
Quarter: 2018Q4

REPORT INFORMATION
  Report Type: Spontaneous
  Country: FR (occurrence: FR)
  Receive Date: 20171023
  Receipt Date: 20181129
  Transmission Date: 20190204
  Serious: Yes (Other)
  Sender: FDA-Public Use
  Company Number: PHHY2017FR146401

PATIENT
  Sex: Female

DRUGS (1)
  1. GILENYA [Suspect]
     Active Substance: FINGOLIMOD HYDROCHLORIDE
     Indication: FOETAL EXPOSURE DURING PREGNANCY
     Dosage: MATERNAL DOSE: UNKNOWN
     Route: 064

REACTIONS (5)
  - Visual impairment [Not Recovered/Not Resolved]
  - Bronchiolitis [Not Recovered/Not Resolved]
  - Asthma [Not Recovered/Not Resolved]
  - Foetal growth restriction [Unknown]
  - Foetal exposure during pregnancy [Unknown]
